FAERS Safety Report 5868645-X (Version None)
Quarter: 2008Q3

REPORT INFORMATION
  Report Type: 
  Country: None (occurrence: None)
  Receive Date: 20080903
  Receipt Date: 20080826
  Transmission Date: 20090109
  Serious: Yes (Hospitalization)
  Sender: FDA-Public Use
  Company Number: CA-ASTRAZENECA-2008UW17664

PATIENT
  Sex: Male

DRUGS (7)
  1. SEROQUEL [Suspect]
     Dosage: 325 PER DAY
     Route: 048
  2. OLANZAPINE [Concomitant]
  3. CARBAMAZEPINE [Concomitant]
  4. CLOBAZAM [Concomitant]
  5. CLOMIPRAMINE HCL [Concomitant]
  6. LORAZEPAM [Concomitant]
  7. VIGABATRIN [Concomitant]

REACTIONS (1)
  - PULMONARY HYPERTENSION [None]
